FAERS Safety Report 8456257-3 (Version None)
Quarter: 2012Q2

REPORT INFORMATION
  Report Type: 
  Country: None (occurrence: None)
  Receive Date: 20120621
  Receipt Date: 20120613
  Transmission Date: 20120825
  Serious: Yes (Death, Other)
  Sender: FDA-Public Use
  Company Number: DE-MPIJNJ-2012-04245

PATIENT

DRUGS (8)
  1. MELPHALAN HYDROCHLORIDE [Suspect]
     Indication: NON-SMALL CELL LUNG CANCER
  2. VELCADE [Suspect]
     Indication: NON-SMALL CELL LUNG CANCER
  3. VELCADE [Suspect]
     Indication: MULTIPLE MYELOMA
  4. MELPHALAN HYDROCHLORIDE [Suspect]
     Indication: MULTIPLE MYELOMA
     Dosage: 200 MG/M2, CYCLIC
  5. THALIDOMIDE [Suspect]
     Indication: MULTIPLE MYELOMA
  6. THALIDOMIDE [Suspect]
     Indication: NON-SMALL CELL LUNG CANCER
  7. LENALIDOMIDE [Suspect]
     Indication: MULTIPLE MYELOMA
  8. LENALIDOMIDE [Suspect]
     Indication: NON-SMALL CELL LUNG CANCER

REACTIONS (2)
  - NEOPLASM MALIGNANT [None]
  - NON-SMALL CELL LUNG CANCER [None]
